FAERS Safety Report 9606250 (Version 2)
Quarter: 2013Q4

REPORT INFORMATION
  Report Type: Spontaneous
  Country: US (occurrence: US)
  Receive Date: 20131008
  Receipt Date: 20131008
  Transmission Date: 20140711
  Serious: No
  Sender: FDA-Public Use
  Company Number: US-AMGEN-USASP2013039720

PATIENT
  Age: 68 Year
  Sex: Female
  Weight: 69.84 kg

DRUGS (12)
  1. PROLIA [Suspect]
     Indication: OSTEOPOROSIS
     Dosage: UNK UNK, Q6MO, 1ML SYRINGE
     Route: 058
     Dates: start: 20111220
  2. LOVASTATIN [Concomitant]
     Indication: BLOOD CHOLESTEROL
     Dosage: 20 MG, QD
     Route: 048
  3. NEURONTIN [Concomitant]
     Indication: PAIN
     Dosage: 300 MG, QD
     Route: 048
  4. PREVACID [Concomitant]
     Dosage: 30 MG, QD
     Route: 048
  5. SPIRIVA [Concomitant]
     Dosage: UNK UNK, QD
  6. ULTRAM                             /00599202/ [Concomitant]
     Dosage: 50 MG, Q6H AS REQUIRED
  7. ALBUTEROL                          /00139501/ [Concomitant]
  8. METHOTREXATE [Concomitant]
  9. PREDNISONE [Concomitant]
  10. LEUCOVORIN                         /00566701/ [Concomitant]
  11. CALCIUM [Concomitant]
  12. XALATAN [Concomitant]

REACTIONS (2)
  - Back pain [Unknown]
  - Osteoarthritis [Unknown]
